FAERS Safety Report 22629094 (Version 2)
Quarter: 2023Q2

REPORT INFORMATION
  Report Type: Spontaneous
  Country: US (occurrence: US)
  Receive Date: 20230622
  Receipt Date: 20230628
  Transmission Date: 20230721
  Serious: Yes (Hospitalization, Other)
  Sender: FDA-Public Use
  Company Number: US-PFIZER INC-PV202300108577

PATIENT
  Age: 30 Year
  Sex: Male

DRUGS (1)
  1. PENICILLIN G BENZATHINE [Suspect]
     Active Substance: PENICILLIN G BENZATHINE
     Indication: Tertiary syphilis
     Dosage: 3 DOSES OF 2.4M U
     Route: 030

REACTIONS (3)
  - Drug ineffective [Recovering/Resolving]
  - Visual impairment [Recovering/Resolving]
  - Disease progression [Recovering/Resolving]
